FAERS Safety Report 4443107-5 (Version None)
Quarter: 2004Q3

REPORT INFORMATION
  Report Type: 
  Country: None (occurrence: None)
  Receive Date: 20040903
  Receipt Date: 20040628
  Transmission Date: 20050211
  Serious: Yes (Other)
  Sender: FDA-Public Use
  Company Number: 2004UW13346

PATIENT
  Age: 77 Year
  Sex: Female
  Weight: 83.9154 kg

DRUGS (5)
  1. CRESTOR [Suspect]
     Indication: BLOOD CHOLESTEROL INCREASED
     Dosage: 10 MG PO
     Route: 048
  2. LASIX [Concomitant]
  3. LISINOPRIL [Concomitant]
  4. TOPROL-XL [Concomitant]
  5. ECOTRIN [Concomitant]

REACTIONS (1)
  - BLISTER [None]
